FAERS Safety Report 16747139 (Version 1)
Quarter: 2019Q3

REPORT INFORMATION
  Report Type: Spontaneous
  Country: US (occurrence: US)
  Receive Date: 20190827
  Receipt Date: 20190827
  Transmission Date: 20191005
  Serious: No
  Sender: FDA-Public Use
  Company Number: US-SA-2019SA238381

PATIENT
  Age: 57 Year
  Sex: Female
  Weight: 138 kg

DRUGS (7)
  1. CEREZYME [Suspect]
     Active Substance: IMIGLUCERASE
     Indication: LIPIDOSIS
     Dosage: 3600 UNITS, Q4W
     Dates: start: 20100129
  2. EPINEPHRINE. [Concomitant]
     Active Substance: EPINEPHRINE
     Dosage: 0.3 MG, PRN (AUTO INJECTOR)
     Route: 030
     Dates: start: 20180711
  3. NORMAL SALINE [Concomitant]
     Active Substance: SODIUM CHLORIDE
     Dosage: 0.9 %, UNK (NS20)
     Route: 042
     Dates: start: 20180711
  4. CEREZYME [Suspect]
     Active Substance: IMIGLUCERASE
     Indication: FABRY^S DISEASE
     Dosage: 2600 UNITS, Q4W
     Route: 041
     Dates: start: 20180711
  5. DIPHENHYDRAMINE. [Concomitant]
     Active Substance: DIPHENHYDRAMINE
     Dosage: 25 MG, PRN ANA
     Route: 048
     Dates: start: 20180711
  6. SODIUM CHLORIDE. [Concomitant]
     Active Substance: SODIUM CHLORIDE
     Dosage: 0.9 %, UNK (FLUSH IV)
     Route: 042
  7. VITAMIN B12 [Concomitant]
     Active Substance: CYANOCOBALAMIN
     Dosage: 2000 IU, QD
     Route: 048
     Dates: start: 20180421

REACTIONS (1)
  - Sinusitis [Unknown]
